FAERS Safety Report 8433188-6 (Version None)
Quarter: 2012Q2

REPORT INFORMATION
  Report Type: 
  Country: None (occurrence: None)
  Receive Date: 20120613
  Receipt Date: 20120606
  Transmission Date: 20120825
  Serious: Yes (Other)
  Sender: FDA-Public Use
  Company Number: GR-GLAXOSMITHKLINE-B0784125A

PATIENT
  Age: 89 Year
  Sex: Male

DRUGS (1)
  1. PROMACTA [Suspect]
     Indication: MYELODYSPLASTIC SYNDROME
     Dosage: 50MG PER DAY
     Route: 065
     Dates: start: 20111220, end: 20120110

REACTIONS (6)
  - ACUTE MYELOID LEUKAEMIA [None]
  - PLATELET COUNT INCREASED [None]
  - MYELODYSPLASTIC SYNDROME [None]
  - HAEMORRHAGE [None]
  - WHITE BLOOD CELL COUNT INCREASED [None]
  - RESPIRATORY TRACT INFECTION [None]
